FAERS Safety Report 9121967 (Version 1)
Quarter: 2013Q1

REPORT INFORMATION
  Report Type: Spontaneous
  Country: JP (occurrence: JP)
  Receive Date: 20130114
  Receipt Date: 20130114
  Transmission Date: 20140127
  Serious: Yes (Other)
  Sender: FDA-Public Use
  Company Number: JP-JNJFOC-20130106695

PATIENT
  Sex: 0

DRUGS (1)
  1. REMINYL [Suspect]
     Indication: PRODUCT USED FOR UNKNOWN INDICATION
     Dosage: TOOK 6 TABLETS OF GALANTAMINE HBR TABLET 8 MG AT A TIME
     Route: 048

REACTIONS (2)
  - Coma [Unknown]
  - Overdose [Unknown]
